FAERS Safety Report 10095355 (Version 2)
Quarter: 2014Q3

REPORT INFORMATION
  Report Type: Spontaneous
  Country: US (occurrence: None)
  Receive Date: 20140418
  Receipt Date: 20140701
  Transmission Date: 20150326
  Serious: Yes (Hospitalization, Other)
  Sender: FDA-Public Use
  Company Number: 2014-US-004387

PATIENT
  Age: 51 Year
  Sex: Female
  Weight: 113.4 kg

DRUGS (12)
  1. PRAMIPEXOLE (PRAMIPEXOLE) [Concomitant]
     Active Substance: PRAMIPEXOLE
  2. HYDROXYZINE (HYDROXYZINE HYDROCHLORIDE) [Concomitant]
  3. CYMBALTA [Concomitant]
     Active Substance: DULOXETINE HYDROCHLORIDE
  4. LISINOPRIL (LISINOPRIL DIHYDRATE) (UNKNOWN [Concomitant]
     Active Substance: LISINOPRIL
  5. MONTELUKAST [Concomitant]
     Active Substance: MONTELUKAST SODIUM
  6. GABAPENTIN (GABAPENTIN) [Concomitant]
     Active Substance: GABAPENTIN
  7. OMEPRAZOLE (OMEPRAZOLE SODIUM) [Concomitant]
  8. NUVIGIL (AMODAFINIL) [Concomitant]
  9. IBUPROFEN (IBUPROFEN SODIUM) [Concomitant]
  10. XYREM [Suspect]
     Active Substance: SODIUM OXYBATE
     Indication: NARCOLEPSY
     Route: 048
     Dates: start: 201307, end: 2013
  11. LASIX [Concomitant]
     Active Substance: FUROSEMIDE
  12. KLOR-CON (POTASSIUM CHLORIDE) [Concomitant]

REACTIONS (3)
  - Device malfunction [None]
  - Dysphagia [None]
  - Medical device change [None]

NARRATIVE: CASE EVENT DATE: 201401
